FAERS Safety Report 4761584-7 (Version None)
Quarter: 2005Q3

REPORT INFORMATION
  Report Type: 
  Country: None (occurrence: None)
  Receive Date: 20050901
  Receipt Date: 20050901
  Transmission Date: 20060218
  Serious: Yes (Hospitalization)
  Sender: FDA-Public Use
  Company Number: None

PATIENT
  Age: 55 Year
  Sex: Male

DRUGS (1)
  1. CYCLOSPORINE [Suspect]

REACTIONS (5)
  - APHASIA [None]
  - ASTHENIA [None]
  - DRUG LEVEL INCREASED [None]
  - FAECAL INCONTINENCE [None]
  - URINARY INCONTINENCE [None]
